FAERS Safety Report 9669715 (Version 1)
Quarter: 2013Q4

REPORT INFORMATION
  Report Type: Spontaneous
  Country: BR (occurrence: BR)
  Receive Date: 20131105
  Receipt Date: 20131105
  Transmission Date: 20140711
  Serious: Yes (Other)
  Sender: FDA-Public Use
  Company Number: BR-PFIZER INC-2013313540

PATIENT
  Sex: Female

DRUGS (1)
  1. CELEBRA [Suspect]
     Dosage: UNSPECIFIED DOSAGE, EVERY 12 HOURS
     Route: 048
     Dates: start: 20131031

REACTIONS (3)
  - Speech disorder [Unknown]
  - Hypoaesthesia oral [Unknown]
  - Dysphagia [Unknown]
